FAERS Safety Report 24089168 (Version 1)
Quarter: 2024Q3

REPORT INFORMATION
  Report Type: Report from Study
  Country: US (occurrence: None)
  Receive Date: 20240715
  Receipt Date: 20240715
  Transmission Date: 20241017
  Serious: Yes (Other)
  Sender: ASTRAZENECA
  Company Number: 2019SF13754

PATIENT
  Sex: Female

DRUGS (4)
  1. CRESTOR [Suspect]
     Active Substance: ROSUVASTATIN CALCIUM
     Route: 048
  2. CRESTOR [Suspect]
     Active Substance: ROSUVASTATIN CALCIUM
     Dosage: ROSUVASTATIN CALCIUM
     Route: 048
  3. CRESTOR [Suspect]
     Active Substance: ROSUVASTATIN CALCIUM
     Route: 048
  4. OXYGEN [Concomitant]
     Active Substance: OXYGEN

REACTIONS (8)
  - Lymphoma [Unknown]
  - Cerebrovascular accident [Unknown]
  - Muscle strain [Unknown]
  - Chronic obstructive pulmonary disease [Unknown]
  - Blood pressure increased [Unknown]
  - Diabetes mellitus [Unknown]
  - Illness [Unknown]
  - Angina pectoris [Unknown]
